FAERS Safety Report 13572677 (Version 1)
Quarter: 2017Q2

REPORT INFORMATION
  Report Type: Spontaneous
  Country: US (occurrence: US)
  Receive Date: 20170523
  Receipt Date: 20170523
  Transmission Date: 20170830
  Serious: No
  Sender: FDA-Public Use
  Company Number: US-JNJFOC-20151023705

PATIENT
  Sex: Male

DRUGS (3)
  1. INVEGA SUSTENNA [Suspect]
     Active Substance: PALIPERIDONE PALMITATE
     Indication: PRODUCT USED FOR UNKNOWN INDICATION
     Route: 030
  2. INVEGA [Suspect]
     Active Substance: PALIPERIDONE
     Indication: BIPOLAR DISORDER
     Route: 048
     Dates: start: 2012, end: 2015
  3. INVEGA [Suspect]
     Active Substance: PALIPERIDONE
     Indication: SCHIZOPHRENIA
     Route: 048
     Dates: start: 2012, end: 2015

REACTIONS (3)
  - Weight increased [Unknown]
  - Hyperprolactinaemia [Unknown]
  - Gynaecomastia [Unknown]

NARRATIVE: CASE EVENT DATE: 2014
